FAERS Safety Report 5233353-5 (Version None)
Quarter: 2007Q1

REPORT INFORMATION
  Report Type: 
  Country: None (occurrence: None)
  Receive Date: 20070206
  Receipt Date: 20070206
  Transmission Date: 20070707
  Serious: Yes (Death)
  Sender: FDA-Public Use
  Company Number: None

PATIENT
  Sex: Female
  Weight: 131.5431 kg

DRUGS (2)
  1. ARIXTRA [Suspect]
     Indication: ANTICOAGULANT THERAPY
     Dates: start: 20070116, end: 20070126
  2. ARIXTRA [Suspect]
     Indication: KNEE ARTHROPLASTY
     Dates: start: 20070116, end: 20070126

REACTIONS (2)
  - CARDIAC ARREST [None]
  - THROMBOSIS [None]
